FAERS Safety Report 9512040 (Version 1)
Quarter: 2013Q3

REPORT INFORMATION
  Report Type: Spontaneous
  Country: US (occurrence: US)
  Receive Date: 20130910
  Receipt Date: 20130910
  Transmission Date: 20140515
  Serious: Yes (Other)
  Sender: FDA-Public Use
  Company Number: US-PFIZER INC-2013260000

PATIENT
  Sex: Male

DRUGS (2)
  1. ADVIL [Suspect]
     Indication: PAIN MANAGEMENT
     Dosage: 20 DF, PER DAY
  2. ADVIL [Suspect]
     Dosage: 10 DF,  PER DAY

REACTIONS (2)
  - Overdose [Unknown]
  - Drug dependence [Unknown]
